FAERS Safety Report 7918272-5 (Version None)
Quarter: 2011Q4

REPORT INFORMATION
  Report Type: 
  Country: None (occurrence: None)
  Receive Date: 20111114
  Receipt Date: 20101118
  Transmission Date: 20120403
  Serious: Yes (Hospitalization)
  Sender: FDA-Public Use
  Company Number: 10-513

PATIENT
  Sex: Female

DRUGS (1)
  1. ERGOCALCIFEROL [Suspect]
     Dosage: 50,000 UNITS/WEEK/ORAL
     Route: 048
     Dates: start: 20101101, end: 20101108

REACTIONS (9)
  - LETHARGY [None]
  - ERUCTATION [None]
  - FATIGUE [None]
  - PAIN IN JAW [None]
  - HYPERTENSION [None]
  - DIARRHOEA [None]
  - DECREASED APPETITE [None]
  - NAUSEA [None]
  - FLATULENCE [None]
